FAERS Safety Report 9786496 (Version 1)
Quarter: 2013Q4

REPORT INFORMATION
  Report Type: Spontaneous
  Country: AU (occurrence: None)
  Receive Date: 20131224
  Receipt Date: 20131224
  Transmission Date: 20140711
  Serious: Yes (Other)
  Sender: FDA-Public Use
  Company Number: BACL20130016

PATIENT
  Age: 16 Year
  Sex: Female

DRUGS (1)
  1. BACLOFEN [Suspect]
     Indication: INTENTIONAL OVERDOSE
     Route: 048

REACTIONS (13)
  - Overdose [None]
  - Vomiting [None]
  - Agitation [None]
  - Confusional state [None]
  - Coma [None]
  - Blood bilirubin increased [None]
  - Amnesia [None]
  - Headache [None]
  - Vertigo [None]
  - Motor dysfunction [None]
  - Conversion disorder [None]
  - Areflexia [None]
  - Drug abuse [None]
